FAERS Safety Report 26076643 (Version 2)
Quarter: 2025Q4

REPORT INFORMATION
  Report Type: Report from Study
  Country: US (occurrence: US)
  Receive Date: 20251121
  Receipt Date: 20251202
  Transmission Date: 20260117
  Serious: Yes (Other)
  Sender: MALLINCKRODT
  Company Number: US-MALLINCKRODT-MNK202507162

PATIENT
  Sex: Female
  Weight: 108 kg

DRUGS (1)
  1. CORTICOTROPIN [Suspect]
     Active Substance: CORTICOTROPIN
     Indication: Sarcoidosis
     Dosage: UNKNOWN
     Dates: start: 202506

REACTIONS (9)
  - Hypothyroidism [Unknown]
  - Blood triglycerides increased [Unknown]
  - Gout [Unknown]
  - Visual impairment [Unknown]
  - Migraine [Unknown]
  - Weight decreased [Unknown]
  - Stress [Unknown]
  - Hypersensitivity [Unknown]
  - Insomnia [Unknown]
